FAERS Safety Report 9896383 (Version 1)
Quarter: 2014Q1

REPORT INFORMATION
  Report Type: Spontaneous
  Country: US (occurrence: US)
  Receive Date: 20140213
  Receipt Date: 20140213
  Transmission Date: 20141002
  Serious: No
  Sender: FDA-Public Use
  Company Number: US-BRISTOL-MYERS SQUIBB COMPANY-19797901

PATIENT
  Age: 74 Year
  Sex: Female

DRUGS (8)
  1. ABATACEPT SUBQ INJECTION 125MG/ML [Suspect]
     Dosage: PFS (4 PACK),1DF: 125MG/ML
     Route: 058
  2. PREDNISONE [Concomitant]
     Dosage: PREDNISONE TAB 1MG
  3. CYCLOBENZAPRINE [Concomitant]
     Dosage: CYCLOBENZAPRINE TAB 5MG
  4. FOLIC ACID [Concomitant]
     Dosage: FOLIC ACID TAB
  5. CO-Q-10 PLUS [Concomitant]
     Dosage: CO-Q-10 CAP 100MG
  6. POTASSIUM [Concomitant]
     Dosage: POTASSIUM TAB 95MG
  7. CALCIUM [Concomitant]
     Dosage: CALCIUM 500 TAB
  8. MAGNESIUM CITRATE [Concomitant]
     Dosage: MAGNESIUM CITRATE TAB 100MG

REACTIONS (1)
  - Injection site bruising [Unknown]
